FAERS Safety Report 25230235 (Version 1)
Quarter: 2025Q2

REPORT INFORMATION
  Report Type: Spontaneous
  Country: US (occurrence: US)
  Receive Date: 20250423
  Receipt Date: 20250423
  Transmission Date: 20250717
  Serious: Yes (Hospitalization, Other)
  Sender: TORRENT PHARMA INC.
  Company Number: US-TORRENT-00014320

PATIENT
  Age: 47 Year
  Sex: Female

DRUGS (1)
  1. MINOCYCLINE [Suspect]
     Active Substance: MINOCYCLINE HYDROCHLORIDE
     Indication: Acne
     Dosage: 100 MG ORAL DAILY MINOCYCLINE FOR 2 YEARS
     Route: 048

REACTIONS (4)
  - Aortic stenosis [Unknown]
  - Tooth discolouration [Unknown]
  - Vascular wall discolouration [Unknown]
  - Aortic valve calcification [Unknown]
